FAERS Safety Report 16189157 (Version 2)
Quarter: 2019Q2

REPORT INFORMATION
  Report Type: Spontaneous
  Country: PL (occurrence: PL)
  Receive Date: 20190412
  Receipt Date: 20190416
  Transmission Date: 20190711
  Serious: Yes (Other)
  Sender: FDA-Public Use
  Company Number: PL-ROCHE-2300405

PATIENT
  Age: 71 Year
  Sex: Female

DRUGS (5)
  1. CHLOROQUINE. [Concomitant]
     Active Substance: CHLOROQUINE
     Route: 048
  2. ROACTEMRA [Suspect]
     Active Substance: TOCILIZUMAB
     Indication: RHEUMATOID ARTHRITIS
     Route: 042
     Dates: start: 200911
  3. SULFASALAZINE. [Concomitant]
     Active Substance: SULFASALAZINE
     Route: 048
  4. PREDNIZON [Concomitant]
     Active Substance: PREDNISONE
     Dosage: 5-10 MG
     Route: 014
  5. METHOTREXATE. [Concomitant]
     Active Substance: METHOTREXATE
     Dosage: 10-20 MG
     Route: 058
     Dates: start: 2000, end: 201810

REACTIONS (8)
  - Aortic valve incompetence [Unknown]
  - Rheumatoid arthritis [Unknown]
  - Arteriovenous fistula [Unknown]
  - Fibula fracture [Unknown]
  - Tibia fracture [Unknown]
  - Mitral valve incompetence [Unknown]
  - Skin ulcer [Unknown]
  - Tricuspid valve incompetence [Unknown]

NARRATIVE: CASE EVENT DATE: 201001
